FAERS Safety Report 4773472-0 (Version None)
Quarter: 2005Q3

REPORT INFORMATION
  Report Type: 
  Country: None (occurrence: None)
  Receive Date: 20050914
  Receipt Date: 20050726
  Transmission Date: 20060218
  Serious: Yes (Other)
  Sender: FDA-Public Use
  Company Number: 411967

PATIENT
  Sex: Female

DRUGS (1)
  1. BONIVA [Suspect]
     Dates: start: 20050515

REACTIONS (3)
  - ARTHRALGIA [None]
  - GASTRIC DISORDER [None]
  - WEIGHT INCREASED [None]
